FAERS Safety Report 25136068 (Version 1)
Quarter: 2025Q1

REPORT INFORMATION
  Report Type: Spontaneous
  Country: US (occurrence: None)
  Receive Date: 20250328
  Receipt Date: 20250328
  Transmission Date: 20250409
  Serious: Yes (Life-Threatening, Hospitalization, Disabling)
  Sender: FDA-CTU
  Company Number: None

PATIENT
  Age: 40 Year
  Sex: Female
  Weight: 123.75 kg

DRUGS (15)
  1. KEYTRUDA [Suspect]
     Active Substance: PEMBROLIZUMAB
     Indication: Adrenocortical carcinoma
     Route: 042
     Dates: start: 20240605
  2. PREDNISONE [Concomitant]
     Active Substance: PREDNISONE
  3. ADVAIR HFA [Concomitant]
     Active Substance: FLUTICASONE PROPIONATE\SALMETEROL XINAFOATE
  4. ZYRTEC [Concomitant]
     Active Substance: CETIRIZINE HYDROCHLORIDE
  5. APIXABAN [Concomitant]
     Active Substance: APIXABAN
  6. HYDROCORTISONE [Suspect]
     Active Substance: HYDROCORTISONE
  7. ONDANSETRON [Concomitant]
     Active Substance: ONDANSETRON
  8. MIRTAZAPINE [Concomitant]
     Active Substance: MIRTAZAPINE
  9. HYDROXYZINE [Concomitant]
     Active Substance: HYDROXYZINE HYDROCHLORIDE
  10. ALBUTEROL [Concomitant]
     Active Substance: ALBUTEROL
  11. Vitamin D w/ K [Concomitant]
  12. k2 flax seed oil [Concomitant]
  13. FAMOTIDINE [Concomitant]
     Active Substance: FAMOTIDINE
  14. LOPERAMIDE [Concomitant]
     Active Substance: LOPERAMIDE
  15. stomach bitters probiotics [Concomitant]

REACTIONS (4)
  - Balance disorder [None]
  - Blood cholesterol increased [None]
  - Blood triglycerides increased [None]
  - Type 1 diabetes mellitus [None]

NARRATIVE: CASE EVENT DATE: 20250317
